FAERS Safety Report 16541898 (Version 1)
Quarter: 2019Q3

REPORT INFORMATION
  Report Type: Spontaneous
  Country: US (occurrence: US)
  Receive Date: 20190708
  Receipt Date: 20190708
  Transmission Date: 20191004
  Serious: No
  Sender: FDA-Public Use
  Company Number: US-PFIZER INC-2019288162

PATIENT
  Age: 73 Year
  Sex: Female

DRUGS (2)
  1. IBRANCE [Suspect]
     Active Substance: PALBOCICLIB
     Dosage: 125 MG, CYCLIC (DAILY FOR 21 DAYS AND THEN 7 DAYS OFF)
     Route: 048
     Dates: end: 2019
  2. IBRANCE [Suspect]
     Active Substance: PALBOCICLIB
     Dosage: 100 MG, CYCLIC (DAILY FOR 21 DAYS AND THEN 7 DAYS OFF)
     Route: 048
     Dates: start: 2019

REACTIONS (3)
  - Alopecia [Unknown]
  - White blood cell count decreased [Recovered/Resolved]
  - Stomatitis [Unknown]

NARRATIVE: CASE EVENT DATE: 2019
